FAERS Safety Report 22119493 (Version 1)
Quarter: 2023Q1

REPORT INFORMATION
  Report Type: Spontaneous
  Country: FR (occurrence: FR)
  Receive Date: 20230321
  Receipt Date: 20230321
  Transmission Date: 20230417
  Serious: Yes (Hospitalization)
  Sender: FDA-Public Use
  Company Number: None

PATIENT
  Age: 55 Year
  Sex: Female
  Weight: 58 kg

DRUGS (3)
  1. TRAMADOL [Suspect]
     Active Substance: TRAMADOL
     Indication: Spinal pain
     Dosage: 1 DOSAGE FORM, QD
     Route: 048
     Dates: start: 20221018
  2. LAMALINE (ACETAMINOPHEN\CAFFEINE\OPIUM) [Suspect]
     Active Substance: ACETAMINOPHEN\CAFFEINE\OPIUM
     Indication: Pain
     Dosage: 1 DOSAGE FORM, Q3D, LONG TERM
     Route: 048
     Dates: end: 20221215
  3. ELIQUIS [Concomitant]
     Active Substance: APIXABAN
     Indication: Pulmonary embolism
     Dosage: 10MG, QOD,10MG MRNG/EVNG 1WK THEN 5MG MRNG/EVNG 6
     Route: 048
     Dates: start: 20221013, end: 20221015

REACTIONS (2)
  - Hepatic cytolysis [Recovered/Resolved]
  - Pancreatitis acute [Recovered/Resolved]

NARRATIVE: CASE EVENT DATE: 20221014
